FAERS Safety Report 5285935-2 (Version None)
Quarter: 2007Q2

REPORT INFORMATION
  Report Type: 
  Country: None (occurrence: None)
  Receive Date: 20070404
  Receipt Date: 20070326
  Transmission Date: 20071010
  Serious: Yes (Hospitalization)
  Sender: FDA-Public Use
  Company Number: US-KINGPHARMUSA00001-K200700366

PATIENT

DRUGS (2)
  1. TIGAN [Suspect]
     Indication: NAUSEA
     Dosage: 300 MG, TID
     Route: 048
     Dates: start: 20070218, end: 20070227
  2. APOKYN [Suspect]
     Indication: PARKINSON'S DISEASE
     Dosage: .5 ML, SINGLE
     Route: 058
     Dates: start: 20070220, end: 20070220

REACTIONS (2)
  - CONSTIPATION [None]
  - UNEVALUABLE EVENT [None]
